FAERS Safety Report 4924565-6 (Version None)
Quarter: 2006Q1

REPORT INFORMATION
  Report Type: 
  Country: None (occurrence: None)
  Receive Date: 20060222
  Receipt Date: 20060208
  Transmission Date: 20060701
  Serious: Yes (Other)
  Sender: FDA-Public Use
  Company Number: SUS1-2006-00153

PATIENT
  Age: 9 Year
  Sex: Male

DRUGS (1)
  1. ADDERALL XR 20 [Suspect]
     Dosage: 20 MG, ORAL
     Route: 048

REACTIONS (1)
  - SYNCOPE [None]
